FAERS Safety Report 21139734 (Version 1)
Quarter: 2022Q3

REPORT INFORMATION
  Report Type: Spontaneous
  Country: JP (occurrence: JP)
  Receive Date: 20220727
  Receipt Date: 20220727
  Transmission Date: 20221026
  Serious: Yes (Hospitalization)
  Sender: FDA-Public Use
  Company Number: JP-SUN PHARMACEUTICAL INDUSTRIES LTD-2022RR-345602

PATIENT
  Age: 56 Year
  Sex: Female

DRUGS (3)
  1. TADALAFIL [Suspect]
     Active Substance: TADALAFIL
     Indication: Right ventricular failure
     Dosage: 40 MILLIGRAM, QD
     Route: 048
  2. MACITENTAN [Suspect]
     Active Substance: MACITENTAN
     Indication: Right ventricular failure
     Dosage: 10 MILLIGRAM, QD
     Route: 048
  3. BERAPROST [Suspect]
     Active Substance: BERAPROST
     Indication: Right ventricular failure
     Dosage: 60 MICROGRAM, TID
     Route: 048

REACTIONS (2)
  - Condition aggravated [Unknown]
  - Therapeutic product effect incomplete [Unknown]
